FAERS Safety Report 6804364-0 (Version None)
Quarter: 2010Q2

REPORT INFORMATION
  Report Type: 
  Country: None (occurrence: None)
  Receive Date: 20100628
  Receipt Date: 20070706
  Transmission Date: 20101027
  Serious: No
  Sender: FDA-Public Use
  Company Number: US-PFIZER INC-2007008271

PATIENT
  Sex: Female
  Weight: 56.7 kg

DRUGS (13)
  1. GEODON [Suspect]
     Indication: BIPOLAR DISORDER
     Dates: start: 20070401
  2. PREVACID [Concomitant]
  3. SYNTHROID [Concomitant]
  4. CYMBALTA [Concomitant]
  5. ENALAPRIL MALEATE [Concomitant]
  6. FEXOFENADINE HCL [Concomitant]
  7. PREMARIN [Concomitant]
  8. MIRALAX [Concomitant]
  9. ALLEGRA [Concomitant]
  10. ATIVAN [Concomitant]
  11. ESTROGENS [Concomitant]
  12. VASOTEC [Concomitant]
  13. PROZAC [Concomitant]

REACTIONS (6)
  - CHILLS [None]
  - DRY MOUTH [None]
  - ORAL DISCOMFORT [None]
  - RASH [None]
  - TONGUE BLISTERING [None]
  - TONGUE DISORDER [None]
